FAERS Safety Report 9272467 (Version 1)
Quarter: 2013Q2

REPORT INFORMATION
  Report Type: Spontaneous
  Country: US (occurrence: US)
  Receive Date: 20130506
  Receipt Date: 20130506
  Transmission Date: 20140414
  Serious: No
  Sender: FDA-Public Use
  Company Number: US-ASTRAZENECA-2012SE76382

PATIENT
  Age: 56 Year
  Sex: Female
  Weight: 44 kg

DRUGS (6)
  1. PRILOSEC OTC [Suspect]
     Indication: HYPERCHLORHYDRIA
     Route: 048
     Dates: start: 20120828, end: 20120828
  2. PRILOSEC OTC [Suspect]
     Indication: IRON BINDING CAPACITY TOTAL DECREASED
     Route: 048
     Dates: start: 20120828, end: 20120828
  3. PRILOSEC OTC [Suspect]
     Indication: HYPERCHLORHYDRIA
     Route: 048
  4. PRILOSEC OTC [Suspect]
     Indication: IRON BINDING CAPACITY TOTAL DECREASED
     Route: 048
  5. FOLIC ACID [Concomitant]
  6. VITAMIN D W/VITAMIN E [Concomitant]

REACTIONS (8)
  - Palpitations [Recovered/Resolved]
  - Fatigue [Recovered/Resolved]
  - Sensation of heaviness [Recovered/Resolved]
  - Dysstasia [Recovered/Resolved]
  - Headache [Recovered/Resolved]
  - Dizziness [Recovered/Resolved]
  - Diarrhoea [Recovered/Resolved]
  - Arthralgia [Recovered/Resolved]
